FAERS Safety Report 5427049-4 (Version None)
Quarter: 2007Q3

REPORT INFORMATION
  Report Type: 
  Country: None (occurrence: None)
  Receive Date: 20070824
  Receipt Date: 20070824
  Transmission Date: 20080115
  Serious: Yes (Life-Threatening, Hospitalization)
  Sender: FDA-Public Use
  Company Number: None

PATIENT
  Age: 53 Year
  Sex: Female
  Weight: 48 kg

DRUGS (8)
  1. DAPSONE [Suspect]
     Indication: ANTIFUNGAL PROPHYLAXIS
     Dosage: 100MG PO QD
     Route: 048
     Dates: start: 20070425, end: 20070514
  2. PROGRAF [Concomitant]
  3. PREDNISONE [Concomitant]
  4. CIPRO [Concomitant]
  5. ZOLOFT [Concomitant]
  6. NORVASC [Concomitant]
  7. NEUPOGEN [Concomitant]
  8. ZYRTEC [Concomitant]

REACTIONS (6)
  - BACK PAIN [None]
  - BLOOD METHAEMOGLOBIN PRESENT [None]
  - DYSPNOEA [None]
  - DYSPNOEA EXERTIONAL [None]
  - MALAISE [None]
  - OXYGEN SATURATION DECREASED [None]
